FAERS Safety Report 6961495-2 (Version None)
Quarter: 2010Q3

REPORT INFORMATION
  Report Type: 
  Country: None (occurrence: None)
  Receive Date: 20100901
  Receipt Date: 20100823
  Transmission Date: 20110219
  Serious: Yes (Hospitalization)
  Sender: FDA-Public Use
  Company Number: US-ABBOTT-10P-163-0665519-00

PATIENT
  Sex: Female
  Weight: 68.1 kg

DRUGS (6)
  1. HUMIRA [Suspect]
     Indication: PSORIATIC ARTHROPATHY
     Dates: start: 20090601, end: 20091001
  2. HUMIRA [Suspect]
     Dates: start: 20100401
  3. ASPIRIN [Concomitant]
     Indication: THROMBOSIS PROPHYLAXIS
     Dates: start: 20091009, end: 20100601
  4. HEPARIN [Concomitant]
     Indication: THROMBOSIS PROPHYLAXIS
     Dates: start: 20091009, end: 20100601
  5. IRON [Concomitant]
     Indication: MINERAL SUPPLEMENTATION
     Dates: start: 20091009
  6. PRENATAL VITAMINS [Concomitant]
     Indication: VITAMIN SUPPLEMENTATION
     Dates: start: 20091009

REACTIONS (6)
  - ARTHRALGIA [None]
  - FAILED INDUCTION OF LABOUR [None]
  - GAIT DISTURBANCE [None]
  - INCISION SITE HAEMORRHAGE [None]
  - PSORIASIS [None]
  - THROMBOSIS [None]
